FAERS Safety Report 7571073-2 (Version None)
Quarter: 2011Q2

REPORT INFORMATION
  Report Type: 
  Country: None (occurrence: None)
  Receive Date: 20110624
  Receipt Date: 20110621
  Transmission Date: 20111010
  Serious: Yes (Hospitalization, Other)
  Sender: FDA-Public Use
  Company Number: CA-ABBOTT-11P-028-0727043-00

PATIENT
  Sex: Female
  Weight: 72.186 kg

DRUGS (4)
  1. HUMIRA [Suspect]
     Route: 058
     Dates: start: 20110515
  2. FLOVENT [Concomitant]
     Indication: ASTHMA
     Route: 055
     Dates: start: 19960101
  3. VENTOLIN HFA [Concomitant]
     Indication: ASTHMA
     Route: 055
     Dates: start: 19960101
  4. HUMIRA [Suspect]
     Indication: CROHN'S DISEASE
     Route: 058
     Dates: start: 20091209, end: 20110122

REACTIONS (10)
  - INCISION SITE INFECTION [None]
  - WOUND HAEMORRHAGE [None]
  - ABDOMINAL WALL ABSCESS [None]
  - INFECTION [None]
  - RENAL PAIN [None]
  - DRUG INEFFECTIVE [None]
  - CROHN'S DISEASE [None]
  - PROCTALGIA [None]
  - WOUND SECRETION [None]
  - ABDOMINAL ABSCESS [None]
